FAERS Safety Report 7559414-3 (Version None)
Quarter: 2011Q2

REPORT INFORMATION
  Report Type: 
  Country: None (occurrence: None)
  Receive Date: 20110621
  Receipt Date: 20110613
  Transmission Date: 20111010
  Serious: Yes (Hospitalization)
  Sender: FDA-Public Use
  Company Number: GB-BRISTOL-MYERS SQUIBB COMPANY-14484075

PATIENT
  Age: 78 Year
  Sex: Female

DRUGS (10)
  1. LOSARTAN POTASSIUM [Concomitant]
  2. WARFARIN SODIUM [Suspect]
     Indication: THROMBOSIS PROPHYLAXIS
     Dosage: 1 DF= 1 UNITS NOT SPECIFIED.INTERRUPTED ON 23JAN09.
     Route: 048
     Dates: start: 20081114, end: 20090123
  3. DILTIAZEM HCL [Concomitant]
  4. PYRIDOSTIGMINE BROMIDE [Concomitant]
  5. PROPAFENONE HCL [Concomitant]
     Dates: start: 20081214
  6. ATORVASTATIN [Concomitant]
  7. DILTIAZEM HCL [Concomitant]
  8. GTN SPRAY [Concomitant]
  9. PLACEBO [Suspect]
     Indication: THROMBOSIS PROPHYLAXIS
     Dosage: INTERRUPTED ON 23JAN09.
     Route: 048
     Dates: start: 20081114, end: 20090123
  10. FUROSEMIDE [Concomitant]

REACTIONS (4)
  - CARDIAC FAILURE CONGESTIVE [None]
  - PALPITATIONS [None]
  - ATRIAL FIBRILLATION [None]
  - DYSPNOEA [None]
